FAERS Safety Report 6455945-8 (Version None)
Quarter: 2009Q4

REPORT INFORMATION
  Report Type: 
  Country: None (occurrence: None)
  Receive Date: 20091125
  Receipt Date: 20091117
  Transmission Date: 20100525
  Serious: Yes (Other)
  Sender: FDA-Public Use
  Company Number: CA-PFIZER INC-2009252342

PATIENT
  Age: 43 Year
  Sex: Female

DRUGS (2)
  1. CYKLOKAPRON [Suspect]
  2. GABAPENTIN [Concomitant]
     Dosage: UNK

REACTIONS (2)
  - DYSPHONIA [None]
  - PHARYNGEAL OEDEMA [None]
